FAERS Safety Report 16746522 (Version 1)
Quarter: 2019Q3

REPORT INFORMATION
  Report Type: Spontaneous
  Country: FR (occurrence: FR)
  Receive Date: 20190827
  Receipt Date: 20190827
  Transmission Date: 20191005
  Serious: Yes (Life-Threatening)
  Sender: FDA-Public Use
  Company Number: FR-TEVA-2019-FR-1097048

PATIENT
  Age: 47 Year
  Sex: Female
  Weight: 104 kg

DRUGS (5)
  1. STAGID 700 MG, COMPRIME SECABLE [Concomitant]
     Active Substance: METFORMIN PAMOATE
     Dosage: 700 MG
  2. SEROPLEX 5 MG, COMPRIME PELLICULE [Concomitant]
     Active Substance: ESCITALOPRAM OXALATE
     Dosage: 5 MG
  3. SIMVASTATINE [Concomitant]
     Active Substance: SIMVASTATIN
  4. INEXIUM 40 MG, COMPRIME GASTRO-RESISTANT [Concomitant]
     Active Substance: ESOMEPRAZOLE MAGNESIUM
     Dosage: 40 MG
  5. NAPROXEN. [Suspect]
     Active Substance: NAPROXEN
     Indication: TOOTHACHE
     Dosage: 1 DF
     Route: 048
     Dates: start: 20180906, end: 20180906

REACTIONS (3)
  - Angioedema [Recovered/Resolved]
  - Urticaria [Recovered/Resolved]
  - Anaphylactic shock [Recovered/Resolved]

NARRATIVE: CASE EVENT DATE: 20180906
